FAERS Safety Report 25540862 (Version 1)
Quarter: 2025Q3

REPORT INFORMATION
  Report Type: Spontaneous
  Country: US (occurrence: US)
  Receive Date: 20250710
  Receipt Date: 20250710
  Transmission Date: 20251021
  Serious: Yes (Hospitalization)
  Sender: SANDOZ
  Company Number: US-SANDOZ-SDZ2025US047660

PATIENT
  Age: 16 Month
  Sex: Female
  Weight: 8 kg

DRUGS (7)
  1. AVIBACTAM\AZTREONAM [Suspect]
     Active Substance: AVIBACTAM\AZTREONAM
     Dosage: AVIBACTAM SODIUM 106.4 MG]/[AZTREONAM 320 MG], LOADING DOSE
     Route: 040
     Dates: start: 20250423, end: 20250423
  2. AVIBACTAM\AZTREONAM [Suspect]
     Active Substance: AVIBACTAM\AZTREONAM
     Indication: Infection
     Dosage: AVIBACTAM SODIUM 80 MG]/[AZTREONAM 240 MG], MAINTENANCE DOSE
     Route: 040
     Dates: start: 20250423, end: 20250502
  3. MYCOPHENOLATE MOFETIL [Suspect]
     Active Substance: MYCOPHENOLATE MOFETIL
     Indication: Prophylaxis against transplant rejection
     Dosage: 0.125 G, BID
     Route: 048
     Dates: start: 20250329
  4. PREDNISONE ACETATE [Suspect]
     Active Substance: PREDNISONE ACETATE
     Dosage: 5 MG, QD
     Route: 048
     Dates: start: 20250430
  5. PREDNISONE ACETATE [Suspect]
     Active Substance: PREDNISONE ACETATE
     Indication: Prophylaxis against transplant rejection
     Dosage: 5 MG, BID
     Route: 048
     Dates: start: 20250424, end: 20250429
  6. TACROLIMUS [Suspect]
     Active Substance: TACROLIMUS
     Indication: Prophylaxis against transplant rejection
     Dosage: 0.66 MG, BID
     Route: 048
     Dates: start: 20250329
  7. TICAGRELOR [Concomitant]
     Active Substance: TICAGRELOR
     Indication: Thrombosis prophylaxis
     Route: 048
     Dates: start: 20250329

REACTIONS (1)
  - Enterobacter infection [Recovered/Resolved]

NARRATIVE: CASE EVENT DATE: 20250526
